FAERS Safety Report 8271619-5 (Version None)
Quarter: 2012Q2

REPORT INFORMATION
  Report Type: 
  Country: None (occurrence: None)
  Receive Date: 20120410
  Receipt Date: 20120403
  Transmission Date: 20120825
  Serious: Yes (Life-Threatening, Hospitalization, Other)
  Sender: FDA-Public Use
  Company Number: US-GLAXOSMITHKLINE-A0967720A

PATIENT
  Age: 59 Year
  Sex: Female
  Weight: 86.4 kg

DRUGS (2)
  1. TYKERB [Suspect]
     Indication: BONE NEOPLASM MALIGNANT
     Dosage: 250MG UNKNOWN
     Route: 048
     Dates: start: 20120119
  2. XELODA [Concomitant]
     Indication: BREAST CANCER
     Dosage: 2000MG TWICE PER DAY
     Route: 048
     Dates: start: 20120119

REACTIONS (8)
  - SUDDEN CARDIAC DEATH [None]
  - APPARENT DEATH [None]
  - CARDIAC DISORDER [None]
  - ELECTROLYTE IMBALANCE [None]
  - CARDIAC FAILURE [None]
  - STRESS CARDIOMYOPATHY [None]
  - DIARRHOEA [None]
  - NAUSEA [None]
